FAERS Safety Report 7539912-9 (Version None)
Quarter: 2011Q2

REPORT INFORMATION
  Report Type: 
  Country: None (occurrence: None)
  Receive Date: 20110603
  Receipt Date: 20110520
  Transmission Date: 20111010
  Serious: Yes (Hospitalization)
  Sender: FDA-Public Use
  Company Number: NAP-11-02

PATIENT
  Age: 33 Year
  Sex: Female

DRUGS (2)
  1. NAPROXEN [Suspect]
     Indication: PAIN IN EXTREMITY
  2. DEXTROPROPOXYPHENE NAPSILATE/PARACETAMOL [Concomitant]

REACTIONS (13)
  - GANGRENE [None]
  - PULSE ABSENT [None]
  - LEUKOCYTOCLASTIC VASCULITIS [None]
  - PAIN IN EXTREMITY [None]
  - PARALYSIS [None]
  - SENSORY LOSS [None]
  - FINGER AMPUTATION [None]
  - NECROSIS ISCHAEMIC [None]
  - BACTERAEMIA [None]
  - LEG AMPUTATION [None]
  - CHEST PAIN [None]
  - HAEMOGLOBIN INCREASED [None]
  - ARTERIAL OCCLUSIVE DISEASE [None]
